FAERS Safety Report 22348028 (Version 1)
Quarter: 2023Q2

REPORT INFORMATION
  Report Type: Report from Study
  Country: BR (occurrence: BR)
  Receive Date: 20230522
  Receipt Date: 20230522
  Transmission Date: 20230721
  Serious: Yes (Other)
  Sender: FDA-Public Use
  Company Number: BR-CELLTRION INC.-2021BR016504

PATIENT

DRUGS (6)
  1. TRUXIMA [Suspect]
     Active Substance: RITUXIMAB-ABBS
     Indication: Systemic lupus erythematosus
     Dosage: 2 AMPOULES OF TRUXIMA EVERY 6 MONTHS
     Route: 042
     Dates: start: 20220127, end: 20220829
  2. PREDNISONE [Concomitant]
     Active Substance: PREDNISONE
     Indication: Systemic lupus erythematosus
     Dosage: 1 PILL PER DAY/ 1 TABLET A DAY
     Route: 048
     Dates: start: 2013
  3. CHLOROQUINE PHOSPHATE [Concomitant]
     Active Substance: CHLOROQUINE PHOSPHATE
     Indication: Systemic lupus erythematosus
     Dosage: 1 PILL PER DAY/ 1 TABLET A DAY
     Route: 048
     Dates: start: 202211
  4. PREGABALIN [Concomitant]
     Active Substance: PREGABALIN
     Indication: Systemic lupus erythematosus
     Dosage: 1 PILL PER DAY/ 1 TABLET A DAY
     Route: 048
     Dates: start: 2022
  5. VENAFLON [Concomitant]
     Indication: Systemic lupus erythematosus
     Dosage: 450+50MG, 1 PILL PER DAY/ 1 TABLET A DAY
     Route: 048
     Dates: start: 2021
  6. WARFARIN [Concomitant]
     Active Substance: WARFARIN
     Indication: Thrombosis
     Dosage: 1 PILL PER DAY/ 1 TABLET A DAY
     Dates: start: 202210

REACTIONS (7)
  - Systemic lupus erythematosus [Unknown]
  - Throat irritation [Unknown]
  - Rhinorrhoea [Unknown]
  - Nasopharyngitis [Unknown]
  - Infusion related reaction [Unknown]
  - Treatment delayed [Unknown]
  - Off label use [Unknown]

NARRATIVE: CASE EVENT DATE: 20220829
